FAERS Safety Report 7178331-4 (Version None)
Quarter: 2010Q4

REPORT INFORMATION
  Report Type: 
  Country: None (occurrence: None)
  Receive Date: 20101220
  Receipt Date: 20101207
  Transmission Date: 20110411
  Serious: Yes (Other)
  Sender: FDA-Public Use
  Company Number: DE-WATSON-2010-15939

PATIENT
  Age: 47 Year
  Sex: Female

DRUGS (3)
  1. LAMOTRIGINE [Suspect]
     Indication: ASTROCYTOMA
     Dosage: 400 MG, DAILY
  2. LAMOTRIGINE [Suspect]
     Indication: BRAIN LOBECTOMY
  3. VALPROIC ACID [Suspect]
     Indication: PRODUCT USED FOR UNKNOWN INDICATION
     Dosage: 1400 MG, DAILY

REACTIONS (3)
  - ALTERED STATE OF CONSCIOUSNESS [None]
  - HEMIPLEGIA [None]
  - MUTISM [None]
